FAERS Safety Report 12847359 (Version 1)
Quarter: 2016Q4

REPORT INFORMATION
  Report Type: Spontaneous
  Country: US (occurrence: US)
  Receive Date: 20161013
  Receipt Date: 20161013
  Transmission Date: 20170207
  Serious: Yes (Other)
  Sender: FDA-Public Use
  Company Number: None

PATIENT
  Age: 56 Year
  Sex: Female
  Weight: 97.65 kg

DRUGS (3)
  1. MIC/B-COMP+CARN-+LIDO (30MK) 15 MG [Suspect]
     Active Substance: CARNITINE\CHOLINE\INOSITOL\LIDOCAINE\METHIONINE\VITAMIN B COMPLEX
     Indication: WEIGHT CONTROL
     Dosage: ?          OTHER FREQUENCY:HAD TWO INJECTIONS;?
     Route: 058
  2. CHORIONIC GONADOTROPIN.LY-OPHILIZ [Suspect]
     Active Substance: GONADOTROPHIN, CHORIONIC
     Indication: WEIGHT CONTROL
     Dosage: ?          OTHER STRENGTH:JUST SAYS UNIT;?
  3. MIC/B-COMP+CARN-+LIDO (30MK) 15 MG [Suspect]
     Active Substance: CARNITINE\CHOLINE\INOSITOL\LIDOCAINE\METHIONINE\VITAMIN B COMPLEX
     Indication: HORMONE REPLACEMENT THERAPY
     Dosage: ?          OTHER FREQUENCY:HAD TWO INJECTIONS;?
     Route: 058

REACTIONS (1)
  - Diarrhoea [None]
